FAERS Safety Report 9733623 (Version 1)
Quarter: 2013Q4

REPORT INFORMATION
  Report Type: Spontaneous
  Country: US (occurrence: US)
  Receive Date: 20131205
  Receipt Date: 20131205
  Transmission Date: 20140711
  Serious: No
  Sender: FDA-Public Use
  Company Number: US-009507513-1312USA001249

PATIENT
  Sex: Female

DRUGS (1)
  1. CORICIDIN HBP NIGHTTIME MULTI-SYMPTOM LIQUID [Suspect]
     Indication: PRODUCT USED FOR UNKNOWN INDICATION
     Dosage: UNK, UNKNOWN
     Route: 048
     Dates: start: 20131121

REACTIONS (2)
  - Expired drug administered [Unknown]
  - No adverse event [Unknown]
